FAERS Safety Report 14079294 (Version 3)
Quarter: 2017Q4

REPORT INFORMATION
  Report Type: Spontaneous
  Country: JP (occurrence: JP)
  Receive Date: 20171012
  Receipt Date: 20171214
  Transmission Date: 20180321
  Serious: Yes (Life-Threatening, Hospitalization, Other)
  Sender: FDA-Public Use
  Company Number: JP-KYOWAKIRIN-2017BKK002812

PATIENT

DRUGS (14)
  1. FARESTON [Suspect]
     Active Substance: TOREMIFENE CITRATE
     Indication: BREAST CANCER STAGE III
     Dosage: 120 MG/DAY
     Route: 048
     Dates: start: 20170907, end: 20170915
  2. ALLOPURINOL. [Concomitant]
     Active Substance: ALLOPURINOL
     Indication: PRODUCT USED FOR UNKNOWN INDICATION
     Dosage: 100 MG, QD 30 MIN AFTER BREAKFAST
     Route: 065
  3. DIART [Concomitant]
     Active Substance: AZOSEMIDE
     Indication: PRODUCT USED FOR UNKNOWN INDICATION
     Dosage: 60 MG, QD 30 MIN AFTER BREAKFAST
     Route: 065
  4. DIGOSIN [Suspect]
     Active Substance: DIGOXIN
     Indication: CARDIAC FAILURE CHRONIC
     Dosage: 0.125 MG, QD
     Route: 048
  5. BUFFERIN                           /00009201/ [Concomitant]
     Active Substance: ASPIRIN\DIHYDROXYALUMINUM AMINOACETATE ANHYDROUS\MAGNESIUM CARBONATE
     Indication: PRODUCT USED FOR UNKNOWN INDICATION
     Dosage: 81 MG, QD 30 MIN AFTER BREAKFAST
     Route: 065
  6. URSODEOXYCHOLIC ACID [Concomitant]
     Active Substance: URSODIOL
     Indication: PRODUCT USED FOR UNKNOWN INDICATION
     Dosage: 1 DF, TID (EACH 30 MIN AFTER BREAKFAST, LUNCH AND DINNER), 300MG, 1 D
     Route: 065
  7. ASPARA-CA [Concomitant]
     Active Substance: CALCIUM ASPARTATE
     Indication: PRODUCT USED FOR UNKNOWN INDICATION
     Dosage: 1 DF, TID (EACH 30 MIN AFTER BREAKFAST, LUNCH AND DINNER), 600MG, 1 D
     Route: 065
  8. TANATRIL [Concomitant]
     Active Substance: IMIDAPRIL
     Indication: PRODUCT USED FOR UNKNOWN INDICATION
     Dosage: 2.5 MG, QD 30 MIN AFTER BREAKFAST
     Route: 065
  9. GLUCONSAN K [Suspect]
     Active Substance: POTASSIUM GLUCONATE
     Indication: HYPOKALAEMIA
     Dosage: 2G, 1 D
     Route: 065
  10. SULPIRIDE [Concomitant]
     Active Substance: SULPIRIDE
     Indication: PRODUCT USED FOR UNKNOWN INDICATION
     Dosage: 50 MG, QD AFTER DINNER
     Route: 065
  11. TRAMCET [Concomitant]
     Active Substance: ACETAMINOPHEN\TRAMADOL
     Indication: PRODUCT USED FOR UNKNOWN INDICATION
     Dosage: 1 DF 1 D, QD 30 MIN AFTER DINNER
     Route: 065
  12. WARFARIN [Concomitant]
     Active Substance: WARFARIN
     Indication: PRODUCT USED FOR UNKNOWN INDICATION
     Dosage: ADJUSTED BETWEEN 1.25-1.5 MG/DAY (30 MIN AFTER BREAKFAST) (1D)
     Route: 065
  13. ALDACTONE-A [Concomitant]
     Active Substance: SPIRONOLACTONE
     Indication: PRODUCT USED FOR UNKNOWN INDICATION
     Dosage: 2 DF, QD 30 MIN AFTER BREAKFAST
     Route: 065
  14. RECALBON                           /06391801/ [Concomitant]
     Active Substance: MINODRONIC ACID
     Indication: PRODUCT USED FOR UNKNOWN INDICATION
     Dosage: 50 MG, 1X/4 WEEKS ON AWAKENING AS DIRECTED BY PHYSICIAN
     Route: 065

REACTIONS (10)
  - Haemorrhage [Recovered/Resolved]
  - Drug prescribing error [Unknown]
  - Torsade de pointes [Recovered/Resolved]
  - Cardio-respiratory arrest [Recovered/Resolved]
  - Ventricular fibrillation [Recovered/Resolved]
  - Hypokalaemia [Recovered/Resolved]
  - Drug dispensing error [Unknown]
  - Long QT syndrome [Recovered/Resolved]
  - Urinary incontinence [Recovered/Resolved]
  - Haematoma [Recovered/Resolved]

NARRATIVE: CASE EVENT DATE: 20170914
